FAERS Safety Report 17705897 (Version 6)
Quarter: 2022Q3

REPORT INFORMATION
  Report Type: Report from Study
  Country: US (occurrence: US)
  Receive Date: 20200424
  Receipt Date: 20220914
  Transmission Date: 20221027
  Serious: Yes (Other)
  Sender: FDA-Public Use
  Company Number: US-SHIRE-US202014349

PATIENT
  Age: 48 Year
  Sex: Male
  Weight: 63 kg

DRUGS (11)
  1. HUMAN IMMUNOGLOBULIN G [Suspect]
     Active Substance: HUMAN IMMUNOGLOBULIN G
     Indication: Immunodeficiency common variable
     Dosage: 500 MILLIGRAM/KILOGRAM
     Route: 058
     Dates: start: 20190816
  2. HUMAN IMMUNOGLOBULIN G [Suspect]
     Active Substance: HUMAN IMMUNOGLOBULIN G
     Dosage: 500 MILLIGRAM/KILOGRAM
     Route: 058
     Dates: start: 20190821
  3. HUMAN IMMUNOGLOBULIN G [Suspect]
     Active Substance: HUMAN IMMUNOGLOBULIN G
     Dosage: 40 GRAM
     Route: 058
     Dates: start: 20190821
  4. DIPHENHYDRAMINE [Concomitant]
     Active Substance: DIPHENHYDRAMINE
     Indication: Product used for unknown indication
     Dosage: UNK
     Route: 065
  5. ACYCLOVIR [Concomitant]
     Active Substance: ACYCLOVIR
     Indication: Product used for unknown indication
     Dosage: UNK
     Route: 065
  6. EPINEPHRINE [Concomitant]
     Active Substance: EPINEPHRINE
     Indication: Product used for unknown indication
     Dosage: UNK
     Route: 065
  7. FLUTICASONE PROPIONATE [Concomitant]
     Active Substance: FLUTICASONE PROPIONATE
     Dosage: UNK
     Route: 065
  8. ACETAMINOPHEN [Concomitant]
     Active Substance: ACETAMINOPHEN
     Indication: Product used for unknown indication
     Dosage: UNK
     Route: 065
  9. ALBUTEROL SULFATE [Concomitant]
     Active Substance: ALBUTEROL SULFATE
     Indication: Product used for unknown indication
     Dosage: UNK
     Route: 065
  10. LIDOCAINE [Concomitant]
     Active Substance: LIDOCAINE
     Indication: Product used for unknown indication
     Dosage: UNK
     Route: 065
  11. MOMETASONE FUROATE [Concomitant]
     Active Substance: MOMETASONE FUROATE
     Indication: Product used for unknown indication
     Dosage: UNK
     Route: 065

REACTIONS (5)
  - Lower respiratory tract infection [Unknown]
  - Surgery [Unknown]
  - Sinusitis [Not Recovered/Not Resolved]
  - Nasopharyngitis [Unknown]
  - Product dose omission in error [Unknown]

NARRATIVE: CASE EVENT DATE: 20220620
